FAERS Safety Report 9131909 (Version 2)
Quarter: 2013Q1

REPORT INFORMATION
  Report Type: Spontaneous
  Country: US (occurrence: US)
  Receive Date: 20130301
  Receipt Date: 20130321
  Transmission Date: 20140127
  Serious: Yes (Death)
  Sender: FDA-Public Use
  Company Number: PHEH2013US005022

PATIENT
  Age: 76 Year
  Sex: Female

DRUGS (16)
  1. GLEEVEC [Suspect]
     Indication: CHRONIC MYELOID LEUKAEMIA
     Dosage: 400 MG DAILY
     Route: 065
     Dates: start: 20100512
  2. ALLOPURINOL [Concomitant]
     Dosage: UNK UKN, UNK
  3. LEXAPRO [Concomitant]
     Dosage: UNK UKN, UNK
     Route: 065
  4. VALIUM [Concomitant]
     Dosage: UNK
     Route: 065
  5. ASTELIN [Concomitant]
     Dosage: UNK
     Route: 065
  6. FLONASE [Concomitant]
     Dosage: UNK
     Route: 065
  7. SPIRIVA [Concomitant]
     Dosage: UNK
     Route: 065
  8. ALBUTEROL [Concomitant]
     Dosage: UNK
     Route: 065
  9. FISH OIL [Concomitant]
     Dosage: UNK UKN, UNK
     Route: 065
  10. B COMPLEX [Concomitant]
     Dosage: UNK UKN, UNK
     Route: 065
  11. MULTIVITAMINS [Concomitant]
     Dosage: UNK UKN, UNK
     Route: 065
  12. ZETIA [Concomitant]
     Dosage: UNK UKN, UNK
     Route: 065
  13. LIPITOR [Concomitant]
     Dosage: UNK UKN, UNK
     Route: 065
  14. NAXID [Concomitant]
     Dosage: UNK
     Route: 065
  15. NORVASC [Concomitant]
     Dosage: UNK
     Route: 065
  16. CALCIUM [Concomitant]

REACTIONS (1)
  - Death [Fatal]
